FAERS Safety Report 8297693-8 (Version None)
Quarter: 2012Q2

REPORT INFORMATION
  Report Type: 
  Country: None (occurrence: None)
  Receive Date: 20120419
  Receipt Date: 20120412
  Transmission Date: 20120825
  Serious: Yes (Death, Life-Threatening, Other)
  Sender: FDA-Public Use
  Company Number: JP-CELGENEUS-087-CCAZA-11071281

PATIENT
  Sex: Male
  Weight: 61 kg

DRUGS (28)
  1. MEROPENEM [Concomitant]
     Dosage: 1 GRAM
     Route: 041
     Dates: start: 20110705, end: 20110706
  2. KAKODIN-D [Concomitant]
     Route: 041
     Dates: start: 20110706, end: 20110706
  3. OLMESARTAN MEDOXOMIL [Concomitant]
     Dosage: 20 MILLIGRAM
     Route: 048
  4. TANNALBIN [Concomitant]
     Dosage: 3 GRAM
     Route: 048
     Dates: end: 20110530
  5. RED BLOOD CELLS [Concomitant]
     Dosage: 2 UNITS
     Route: 041
     Dates: start: 20110620, end: 20110620
  6. OXYGEN [Concomitant]
     Dosage: 6 LITERS
     Route: 055
     Dates: start: 20110706
  7. AZACITIDINE [Suspect]
     Dosage: 37.5 MILLIGRAM/SQ. METER
     Route: 041
     Dates: start: 20110516, end: 20110524
  8. AZACITIDINE [Suspect]
     Dosage: 37.5 MILLIGRAM/SQ. METER
     Route: 041
     Dates: start: 20110613, end: 20110621
  9. CARNACULIN [Concomitant]
     Dosage: 150 MILLIGRAM
     Route: 048
  10. ZOLPIDEM [Concomitant]
     Dosage: 10 MILLIGRAM
     Route: 048
  11. MAGNESIUM SULFATE [Concomitant]
     Dosage: 330 MILLIGRAM
     Route: 048
  12. LYRICA [Concomitant]
     Dosage: 150 MILLIGRAM
     Route: 048
     Dates: end: 20110510
  13. RED BLOOD CELLS [Concomitant]
     Dosage: 2 UNITS
     Route: 041
     Dates: start: 20110706, end: 20110706
  14. OXYGEN [Concomitant]
     Dosage: 4 LITERS
     Route: 055
     Dates: start: 20110705
  15. FUNGUARD [Concomitant]
     Dosage: 150 MILLIGRAM
     Route: 041
     Dates: start: 20110706, end: 20110706
  16. RED BLOOD CELLS [Concomitant]
     Dosage: 2 UNITS
     Route: 041
     Dates: start: 20110621, end: 20110621
  17. KAKODIN-D [Concomitant]
     Dosage: 500 MILLILITER
     Route: 041
     Dates: start: 20110704, end: 20110705
  18. RED BLOOD CELLS [Concomitant]
     Dosage: 2 UNITS
     Route: 041
     Dates: start: 20110614, end: 20110614
  19. ADALAT CC [Concomitant]
     Dosage: 200 MILLIGRAM
     Route: 048
  20. EPARA [Concomitant]
     Dosage: 600 MILLIGRAM
     Route: 048
  21. LYRICA [Concomitant]
     Dosage: 75 MILLIGRAM
     Route: 048
  22. GRAN [Concomitant]
     Dosage: 75 MICROGRAM
     Route: 041
     Dates: start: 20110705, end: 20110706
  23. HUMULIN R [Concomitant]
     Dosage: 10 IU (INTERNATIONAL UNIT)
     Route: 041
     Dates: start: 20110706, end: 20110706
  24. AZACITIDINE [Suspect]
     Indication: MYELODYSPLASTIC SYNDROME
     Dosage: 75 MILLIGRAM/SQ. METER
     Route: 041
     Dates: start: 20110411, end: 20110419
  25. PANTOSIN [Concomitant]
     Dosage: 100 MILLIGRAM
     Route: 048
  26. LOPERAMIDE HCL [Concomitant]
     Dosage: 1 MILLIGRAM
     Route: 048
     Dates: end: 20110530
  27. SOLITA T [Concomitant]
     Dosage: 1000 MILLILITER
     Route: 041
     Dates: start: 20110705, end: 20110706
  28. ELECTROLYTES [Concomitant]
     Route: 041
     Dates: start: 20110705

REACTIONS (14)
  - ALANINE AMINOTRANSFERASE INCREASED [None]
  - BLOOD UREA INCREASED [None]
  - RED BLOOD CELL COUNT DECREASED [None]
  - NEUTROPHIL COUNT DECREASED [None]
  - BLOOD SODIUM DECREASED [None]
  - WHITE BLOOD CELL COUNT DECREASED [None]
  - DIARRHOEA [None]
  - HAEMOGLOBIN DECREASED [None]
  - HYPERKALAEMIA [None]
  - BLOOD CREATININE INCREASED [None]
  - PLATELET COUNT DECREASED [None]
  - ERYTHROBLAST COUNT DECREASED [None]
  - PULMONARY HAEMORRHAGE [None]
  - ASPARTATE AMINOTRANSFERASE INCREASED [None]
